FAERS Safety Report 8995169 (Version 1)
Quarter: 2012Q4

REPORT INFORMATION
  Report Type: Spontaneous
  Country: US (occurrence: None)
  Receive Date: 20121228
  Receipt Date: 20121228
  Transmission Date: 20130627
  Serious: No
  Sender: FDA-Public Use
  Company Number: None

PATIENT
  Age: 64 Year
  Sex: Male
  Weight: 112.3 kg

DRUGS (2)
  1. HEPARIN [Suspect]
     Indication: CARDIOVASCULAR DISORDER
     Dosage: UNITS
     Dates: start: 20121129, end: 20121129
  2. HEPARIN [Suspect]
     Indication: SURGERY
     Dosage: UNITS
     Dates: start: 20121129, end: 20121129

REACTIONS (1)
  - Coagulation time shortened [None]
